FAERS Safety Report 11421485 (Version 2)
Quarter: 2015Q3

REPORT INFORMATION
  Report Type: Spontaneous
  Country: US (occurrence: US)
  Receive Date: 20150826
  Receipt Date: 20150903
  Transmission Date: 20151125
  Serious: No
  Sender: FDA-Public Use
  Company Number: US-009507513-1508USA007878

PATIENT

DRUGS (1)
  1. DULERA [Suspect]
     Active Substance: FORMOTEROL FUMARATE DIHYDRATE\MOMETASONE FUROATE
     Dosage: 1 STANDARD DOSE OF 13
     Route: 055

REACTIONS (4)
  - Drug dose omission [Unknown]
  - Underdose [Unknown]
  - No adverse event [Unknown]
  - Product quality issue [Unknown]
